FAERS Safety Report 26122673 (Version 1)
Quarter: 2025Q4

REPORT INFORMATION
  Report Type: Spontaneous
  Country: US (occurrence: US)
  Receive Date: 20251204
  Receipt Date: 20251204
  Transmission Date: 20260118
  Serious: No
  Sender: BRISTOL-MYERS SQUIBB COMPANY
  Company Number: US-BRISTOL-MYERS SQUIBB COMPANY-2025-163347

PATIENT
  Age: 56 Year

DRUGS (2)
  1. YERVOY [Suspect]
     Active Substance: IPILIMUMAB
     Indication: Product used for unknown indication
     Dosage: DOSE: 4-50MG?STRENGTH: 50MG
     Route: 042
     Dates: end: 20250924
  2. OPDIVO [Suspect]
     Active Substance: NIVOLUMAB
     Indication: Product used for unknown indication
     Dosage: DOSE: 8-100MG?STRENGTH: 100MG
     Route: 042

REACTIONS (3)
  - Fatigue [Unknown]
  - Drug intolerance [Unknown]
  - Rash [Unknown]
